FAERS Safety Report 6369058-7 (Version None)
Quarter: 2009Q3

REPORT INFORMATION
  Report Type: 
  Country: None (occurrence: None)
  Receive Date: 20090922
  Receipt Date: 20090911
  Transmission Date: 20100115
  Serious: Yes (Other)
  Sender: FDA-Public Use
  Company Number: PHHY2009CA30539

PATIENT
  Sex: Male

DRUGS (7)
  1. DIOVAN [Suspect]
     Indication: HYPERTENSION
     Dosage: 160 MG, QD
     Route: 048
     Dates: start: 20080907, end: 20090727
  2. NORVASC [Concomitant]
     Dosage: 5 MG, QD
  3. FLOMAX [Concomitant]
     Dosage: 0.4 DAILY
  4. NEXIUM [Concomitant]
     Dosage: 40 DAILY
  5. VIAGRA [Concomitant]
     Dosage: 50
  6. ASPIRIN [Concomitant]
     Dosage: ILLEGIBLE
  7. LIPITOR [Concomitant]
     Dosage: 20 DAILY

REACTIONS (4)
  - BLOOD PRESSURE INCREASED [None]
  - DIZZINESS [None]
  - DYSURIA [None]
  - EAR DISORDER [None]
